FAERS Safety Report 4626138-1 (Version None)
Quarter: 2005Q1

REPORT INFORMATION
  Report Type: 
  Country: None (occurrence: None)
  Receive Date: 20050330
  Receipt Date: 20050322
  Transmission Date: 20050727
  Serious: Yes (Hospitalization)
  Sender: FDA-Public Use
  Company Number: TPA2005A00344

PATIENT
  Age: 65 Year
  Sex: Male
  Weight: 99.7913 kg

DRUGS (4)
  1. ACTOS [Suspect]
     Dosage: PER ORAL
     Route: 048
     Dates: start: 19980101, end: 20040101
  2. HUMULIN 70/30 [Suspect]
     Dosage: 45-50 U SLIDING SCALE, QAM + ACS
     Dates: start: 20030101
  3. HUMULIN N [Suspect]
     Dosage: 40-45 UNITS SLIDING SCALE, QHS
     Dates: start: 19910101, end: 20041201
  4. LANTUS [Suspect]
     Dosage: 60 IU, QHS
     Dates: start: 20041201

REACTIONS (7)
  - BLOOD GLUCOSE DECREASED [None]
  - CARDIAC DISORDER [None]
  - COMA [None]
  - FLUID RETENTION [None]
  - HAEMORRHAGE [None]
  - MYOCARDIAL INFARCTION [None]
  - POST PROCEDURAL COMPLICATION [None]
